FAERS Safety Report 15266153 (Version 2)
Quarter: 2018Q4

REPORT INFORMATION
  Report Type: Spontaneous
  Country: FR (occurrence: FR)
  Receive Date: 20180810
  Receipt Date: 20181105
  Transmission Date: 20190204
  Serious: Yes (Hospitalization)
  Sender: FDA-Public Use
  Company Number: FR-PFIZER INC-2018316812

PATIENT
  Age: 84 Year
  Sex: Female
  Weight: 78.8 kg

DRUGS (1)
  1. AMLOR [Suspect]
     Active Substance: AMLODIPINE BESYLATE
     Indication: HYPERTENSION
     Dosage: 5 MG, ONCE DAILY
     Route: 048
     Dates: start: 20180525, end: 20180621

REACTIONS (1)
  - Tendon disorder [Recovered/Resolved]

NARRATIVE: CASE EVENT DATE: 201806
